FAERS Safety Report 25166624 (Version 1)
Quarter: 2025Q2

REPORT INFORMATION
  Report Type: Spontaneous
  Country: US (occurrence: US)
  Receive Date: 20250407
  Receipt Date: 20250407
  Transmission Date: 20250716
  Serious: Yes (Hospitalization, Other)
  Sender: NOVITIUM PHARMA
  Company Number: US-NOVITIUMPHARMA-2025USNVP00836

PATIENT
  Age: 36 Year
  Sex: Female

DRUGS (8)
  1. LIDOCAINE HYDROCHLORIDE [Suspect]
     Active Substance: LIDOCAINE HYDROCHLORIDE
     Indication: Induction of anaesthesia
     Route: 042
  2. LACOSAMIDE [Suspect]
     Active Substance: LACOSAMIDE
     Indication: Seizure prophylaxis
  3. KETAMINE [Concomitant]
     Active Substance: KETAMINE
     Indication: Major depression
     Route: 042
  4. KETAMINE [Concomitant]
     Active Substance: KETAMINE
     Route: 030
  5. CLOMIPRAMINE [Concomitant]
     Active Substance: CLOMIPRAMINE
     Indication: Major depression
  6. GABAPENTIN [Concomitant]
     Active Substance: GABAPENTIN
     Indication: Major depression
  7. METHOHEXITAL [Concomitant]
     Active Substance: METHOHEXITAL
     Indication: Electroconvulsive therapy
  8. Suxamethonium-Chloride [Concomitant]
     Indication: Electroconvulsive therapy

REACTIONS (4)
  - Suicidal ideation [Recovering/Resolving]
  - Weight increased [Unknown]
  - Drug interaction [Unknown]
  - Status epilepticus [Unknown]
